FAERS Safety Report 7533175-6 (Version None)
Quarter: 2011Q2

REPORT INFORMATION
  Report Type: 
  Country: None (occurrence: None)
  Receive Date: 20110608
  Receipt Date: 20020905
  Transmission Date: 20111010
  Serious: Yes (Death)
  Sender: FDA-Public Use
  Company Number: PHBS2002CA06648

PATIENT
  Sex: Male

DRUGS (5)
  1. FLOVENT [Concomitant]
     Dosage: 2 DF, BID
     Route: 065
  2. LIPITOR [Concomitant]
     Dosage: 10 MG, QHS
     Route: 065
  3. CLOZAPINE [Suspect]
     Indication: SCHIZOPHRENIA
     Dosage: 400 MG, QD
     Route: 048
     Dates: start: 19990326
  4. RESTORIL [Concomitant]
     Dosage: 30 MG, QHS
     Route: 065
  5. COMBIVENT [Concomitant]
     Dosage: 2 DF, QHS
     Route: 065

REACTIONS (5)
  - VENTRICULAR HYPERTROPHY [None]
  - PULMONARY OEDEMA [None]
  - OBESITY [None]
  - CARDIAC FAILURE [None]
  - HYPERTENSION [None]
